FAERS Safety Report 8383518-9 (Version None)
Quarter: 2012Q1

REPORT INFORMATION
  Report Type: 
  Country: None (occurrence: None)
  Receive Date: 20120323
  Receipt Date: 20110321
  Transmission Date: 20120608
  Serious: Yes (Other)
  Sender: FDA-Public Use
  Company Number: 163-21880-11032532

PATIENT
  Age: 77 Year
  Sex: Female

DRUGS (6)
  1. VALTREX [Concomitant]
  2. REVLIMID [Suspect]
     Indication: MULTIPLE MYELOMA
     Dosage: 15 MG, 1 IN 1 D, PO 15 MG, 1 IN 1 D, PO 10 MG, X 21, PO
     Route: 048
     Dates: start: 20101201, end: 20110204
  3. REVLIMID [Suspect]
     Indication: MULTIPLE MYELOMA
     Dosage: 15 MG, 1 IN 1 D, PO 15 MG, 1 IN 1 D, PO 10 MG, X 21, PO
     Route: 048
     Dates: start: 20090601
  4. REVLIMID [Suspect]
     Indication: MULTIPLE MYELOMA
     Dosage: 15 MG, 1 IN 1 D, PO 15 MG, 1 IN 1 D, PO 10 MG, X 21, PO
     Route: 048
     Dates: start: 20100201
  5. PLAVIX [Concomitant]
  6. NEURONTIN [Concomitant]

REACTIONS (2)
  - WHITE BLOOD CELL COUNT DECREASED [None]
  - RED BLOOD CELL COUNT DECREASED [None]
